FAERS Safety Report 25727459 (Version 1)
Quarter: 2025Q3

REPORT INFORMATION
  Report Type: Spontaneous
  Country: US (occurrence: US)
  Receive Date: 20250826
  Receipt Date: 20250826
  Transmission Date: 20251020
  Serious: No
  Sender: ROCHE
  Company Number: US-ROCHE-10000361176

PATIENT
  Age: 19 Year
  Sex: Female

DRUGS (4)
  1. XOLAIR PFS [Suspect]
     Active Substance: OMALIZUMAB
     Indication: Urticaria
     Dosage: 300MG IN THE FORM OF (2) 150MG PFS?STRENGTH: 150 MG/ML
     Route: 058
     Dates: start: 20240404
  2. XOLAIR PFS [Suspect]
     Active Substance: OMALIZUMAB
     Indication: Urticaria chronic
  3. XOLAIR PFS [Suspect]
     Active Substance: OMALIZUMAB
     Indication: Food allergy
  4. DUPIXENT [Concomitant]
     Active Substance: DUPILUMAB
     Indication: Urticaria chronic
     Route: 058

REACTIONS (3)
  - Syringe issue [Unknown]
  - No adverse event [Unknown]
  - Product dose omission issue [Unknown]

NARRATIVE: CASE EVENT DATE: 20250806
